FAERS Safety Report 21468597 (Version 4)
Quarter: 2023Q1

REPORT INFORMATION
  Report Type: Spontaneous
  Country: JP (occurrence: JP)
  Receive Date: 20221017
  Receipt Date: 20230321
  Transmission Date: 20230418
  Serious: Yes (Other)
  Sender: FDA-Public Use
  Company Number: JP-BEH-2022150834

PATIENT
  Age: 24 Year
  Sex: Male
  Weight: 53.9 kg

DRUGS (5)
  1. HIZENTRA [Suspect]
     Active Substance: HUMAN IMMUNOGLOBULIN G
     Indication: Chronic inflammatory demyelinating polyradiculoneuropathy
     Dosage: 12 GRAM, QW
     Route: 058
     Dates: start: 20220921
  2. HIZENTRA [Suspect]
     Active Substance: HUMAN IMMUNOGLOBULIN G
     Dosage: 1 VIAL (V)
     Route: 058
     Dates: start: 20221011, end: 20221011
  3. PREDNISOLONE [Concomitant]
     Active Substance: PREDNISOLONE
     Dosage: 5 MILLIGRAM, QD (MORNING)
     Dates: start: 20220927
  4. NEXIUM [Concomitant]
     Active Substance: ESOMEPRAZOLE MAGNESIUM
     Dosage: 1 CAP, QD (MORNING)
     Dates: start: 20220927
  5. NADIFLOXACIN [Concomitant]
     Active Substance: NADIFLOXACIN
     Dosage: 1 BOTTLE
     Dates: start: 20220927

REACTIONS (11)
  - Presyncope [Recovered/Resolved]
  - Presyncope [Recovered/Resolved]
  - Hyperhidrosis [Recovered/Resolved]
  - Blood pressure decreased [Recovered/Resolved]
  - Dizziness [Recovered/Resolved]
  - Cold sweat [Recovered/Resolved]
  - No adverse event [Unknown]
  - Underdose [Unknown]
  - Pain [Unknown]
  - Respiratory rate increased [Unknown]
  - Tremor [Unknown]

NARRATIVE: CASE EVENT DATE: 20221011
